FAERS Safety Report 9914369 (Version 1)
Quarter: 2014Q1

REPORT INFORMATION
  Report Type: Spontaneous
  Country: US (occurrence: US)
  Receive Date: 20140220
  Receipt Date: 20140220
  Transmission Date: 20141002
  Serious: No
  Sender: FDA-Public Use
  Company Number: US-009507513-1402USA009984

PATIENT
  Sex: Female

DRUGS (1)
  1. OXYTROL FOR WOMEN [Suspect]
     Indication: PRODUCT USED FOR UNKNOWN INDICATION
     Dosage: UNK, UNKNOWN
     Route: 062
     Dates: end: 201401

REACTIONS (4)
  - Insomnia [Recovered/Resolved]
  - Erythema [Not Recovered/Not Resolved]
  - Pruritus [Recovering/Resolving]
  - Drug ineffective [Unknown]
